FAERS Safety Report 5657495-5 (Version None)
Quarter: 2008Q1

REPORT INFORMATION
  Report Type: 
  Country: None (occurrence: None)
  Receive Date: 20080307
  Receipt Date: 20080307
  Transmission Date: 20080703
  Serious: Yes (Hospitalization)
  Sender: FDA-Public Use
  Company Number: None

PATIENT
  Sex: Male
  Weight: 52 kg

DRUGS (2)
  1. CARDIZEM LA [Suspect]
     Dosage: 180MG DAILY PO
     Route: 048
  2. LOPRESSOR [Suspect]
     Dosage: 50MG DAILY PO
     Route: 048

REACTIONS (2)
  - ASTHENIA [None]
  - HYPOTENSION [None]
